FAERS Safety Report 21917311 (Version 1)
Quarter: 2023Q1

REPORT INFORMATION
  Report Type: Spontaneous
  Country: SE (occurrence: SE)
  Receive Date: 20230126
  Receipt Date: 20230126
  Transmission Date: 20230418
  Serious: Yes (Hospitalization, Other)
  Sender: FDA-Public Use
  Company Number: SE-PAIPHARMA-2023-SE-000005

PATIENT
  Age: 12 Year
  Sex: Female

DRUGS (1)
  1. ETHOSUXIMIDE [Suspect]
     Active Substance: ETHOSUXIMIDE
     Indication: Juvenile absence epilepsy
     Dosage: 15 MG/KG DAILY
     Route: 048

REACTIONS (1)
  - Raynaud^s phenomenon [Recovered/Resolved]
